FAERS Safety Report 21624205 (Version 1)
Quarter: 2022Q4

REPORT INFORMATION
  Report Type: Spontaneous
  Country: IT (occurrence: IT)
  Receive Date: 20221121
  Receipt Date: 20221121
  Transmission Date: 20230113
  Serious: Yes (Other)
  Sender: FDA-Public Use
  Company Number: 22_00020910(0)

PATIENT

DRUGS (8)
  1. DEXMEDETOMIDINE HYDROCHLORIDE [Suspect]
     Active Substance: DEXMEDETOMIDINE HYDROCHLORIDE
     Indication: Sedative therapy
     Dosage: 0.17 ML/H (0.17 ML, 1 HR)
     Route: 065
     Dates: start: 20220826
  2. DEXMEDETOMIDINE HYDROCHLORIDE [Suspect]
     Active Substance: DEXMEDETOMIDINE HYDROCHLORIDE
     Indication: Analgesic therapy
  3. HYDROCORTISONE SODIUM SUCCINATE [Suspect]
     Active Substance: HYDROCORTISONE SODIUM SUCCINATE
     Indication: Bronchial dysplasia
     Dosage: 2.2 MG X 4/DAY (DOSE REDUCED PROGRESSIVELY DURING THE MONTH OF TREATMENT AS PER TREATMENT PROTOCOL)
     Route: 065
     Dates: start: 20220826
  4. CAFFEINE [Concomitant]
     Active Substance: CAFFEINE
     Indication: Product used for unknown indication
     Dosage: UNKNOWN
     Route: 065
  5. MEROPENEM [Concomitant]
     Active Substance: MEROPENEM
     Indication: Product used for unknown indication
     Dosage: 25 MG X 3/DOSE (28 MG, 1 IN 8 HR)
     Route: 065
  6. VANCOMYCIN [Concomitant]
     Active Substance: VANCOMYCIN
     Indication: Product used for unknown indication
     Dosage: 21 MG X 2/DOSE (21 MG, 1 IN 12 HR)
     Route: 065
  7. TOBRAMICINA [TOBRAMYCIN] [Concomitant]
     Indication: Product used for unknown indication
     Dosage: 3.5 MILLIGRAM, 18H (3.5 MG, 1 IN 18 HR)
     Route: 065
  8. OMEPRAZOLE [Concomitant]
     Active Substance: OMEPRAZOLE
     Indication: Product used for unknown indication
     Dosage: UNKNOWN
     Route: 065

REACTIONS (1)
  - Neonatal hyperglycaemia [Recovered/Resolved]

NARRATIVE: CASE EVENT DATE: 20220827
